FAERS Safety Report 19966712 (Version 1)
Quarter: 2021Q4

REPORT INFORMATION
  Report Type: Spontaneous
  Country: US (occurrence: US)
  Receive Date: 20211019
  Receipt Date: 20211019
  Transmission Date: 20220303
  Serious: No
  Sender: FDA-Public Use
  Company Number: US-TEVA-2021-US-1949256

PATIENT
  Age: 64 Year
  Sex: Female

DRUGS (5)
  1. VENLAFAXINE HYDROCHLORIDE [Suspect]
     Active Substance: VENLAFAXINE HYDROCHLORIDE
     Indication: Diagnostic procedure
     Dosage: EXTENDED-RELEASE CAPSULES/TOOK HALF IN THE MORNING AND 1/2 IN THE EVENING
     Route: 065
     Dates: start: 20210827, end: 20210902
  2. VENLAFAXINE HYDROCHLORIDE [Suspect]
     Active Substance: VENLAFAXINE HYDROCHLORIDE
     Dosage: A HALF ONCE A DAY
     Route: 065
  3. VENLAFAXINE HYDROCHLORIDE [Suspect]
     Active Substance: VENLAFAXINE HYDROCHLORIDE
     Dosage: WHERE SHE TOOK 1 WHOLE TABLET
     Route: 065
     Dates: start: 20210901
  4. VENLAFAXINE HYDROCHLORIDE [Suspect]
     Active Substance: VENLAFAXINE HYDROCHLORIDE
     Dosage: HALF A TABLET IN MORNING AND ANOTHER HALF A TABLET IN THE EVENING
     Route: 065
     Dates: start: 20210902
  5. EPINEPHRINE [Concomitant]
     Active Substance: EPINEPHRINE
     Route: 065

REACTIONS (2)
  - Product prescribing error [Unknown]
  - Tremor [Unknown]

NARRATIVE: CASE EVENT DATE: 20210901
